FAERS Safety Report 18172985 (Version 2)
Quarter: 2020Q3

REPORT INFORMATION
  Report Type: Spontaneous
  Country: US (occurrence: US)
  Receive Date: 20200820
  Receipt Date: 20200909
  Transmission Date: 20201103
  Serious: No
  Sender: FDA-Public Use
  Company Number: US-DRREDDYS-USA/USA/20/0125892

PATIENT
  Age: 87 Year
  Sex: Female
  Weight: 49.95 kg

DRUGS (2)
  1. AMLODIPINE [Concomitant]
     Active Substance: AMLODIPINE BESYLATE
     Indication: PRODUCT USED FOR UNKNOWN INDICATION
  2. OMEPRAZOLE MAGNESIUM DELAYED RELEASE OTC [Suspect]
     Active Substance: OMEPRAZOLE MAGNESIUM
     Indication: GASTROOESOPHAGEAL REFLUX DISEASE
     Route: 048

REACTIONS (7)
  - Drug ineffective [Unknown]
  - Product residue present [Unknown]
  - Product solubility abnormal [Unknown]
  - Product expiration date issue [Unknown]
  - Dysphagia [Unknown]
  - Incorrect dose administered [Unknown]
  - Product lot number issue [Unknown]
